FAERS Safety Report 7286117-5 (Version None)
Quarter: 2011Q1

REPORT INFORMATION
  Report Type: 
  Country: None (occurrence: None)
  Receive Date: 20110210
  Receipt Date: 20110128
  Transmission Date: 20110831
  Serious: Yes (Hospitalization)
  Sender: FDA-Public Use
  Company Number: US-ELI_LILLY_AND_COMPANY-US201102000027

PATIENT
  Age: 65 Year
  Sex: Female

DRUGS (3)
  1. ZYPREXA [Suspect]
     Indication: SCHIZOPHRENIA
     Dosage: UNK, UNKNOWN
     Route: 065
     Dates: start: 20010101
  2. ZYPREXA [Suspect]
     Dosage: 25 MG, DAILY (1/D)
  3. ANTIHYPERTENSIVES [Concomitant]

REACTIONS (4)
  - DRUG INEFFECTIVE [None]
  - PSYCHOTIC DISORDER [None]
  - DIABETES MELLITUS [None]
  - OVERDOSE [None]
